FAERS Safety Report 7100524-2 (Version None)
Quarter: 2010Q4

REPORT INFORMATION
  Report Type: 
  Country: None (occurrence: None)
  Receive Date: 20101113
  Receipt Date: 20100216
  Transmission Date: 20110411
  Serious: Yes (Other)
  Sender: FDA-Public Use
  Company Number: US-ALLERGAN-1002038US

PATIENT
  Sex: Female

DRUGS (3)
  1. BOTOXA? [Suspect]
     Indication: TORTICOLLIS
     Dosage: 220 UNITS, SINGLE
     Dates: start: 20070101, end: 20070101
  2. BOTOXA? [Suspect]
     Indication: HEADACHE
  3. UNSPECIFIED BLOOD PRESSURE MEDICATION [Concomitant]

REACTIONS (6)
  - DIZZINESS [None]
  - DRUG ADMINISTERED AT INAPPROPRIATE SITE [None]
  - HYPOAESTHESIA [None]
  - MUSCULAR WEAKNESS [None]
  - VERTIGO [None]
  - VISION BLURRED [None]
